FAERS Safety Report 19004713 (Version 1)
Quarter: 2021Q1

REPORT INFORMATION
  Report Type: Spontaneous
  Country: IL (occurrence: IL)
  Receive Date: 20210312
  Receipt Date: 20210312
  Transmission Date: 20210420
  Serious: Yes (Other)
  Sender: FDA-Public Use
  Company Number: IL-GILEAD-2021-0519558

PATIENT
  Sex: Male

DRUGS (1)
  1. EPCLUSA [Suspect]
     Active Substance: SOFOSBUVIR\VELPATASVIR
     Indication: HEPATITIS C
     Dosage: UNK
     Route: 065
     Dates: start: 20160301

REACTIONS (3)
  - Hepatocellular carcinoma [Unknown]
  - Off label use [Recovered/Resolved]
  - Liver transplant [Unknown]

NARRATIVE: CASE EVENT DATE: 20160301
